FAERS Safety Report 10011110 (Version 1)
Quarter: 2014Q1

REPORT INFORMATION
  Report Type: Spontaneous
  Country: JP (occurrence: None)
  Receive Date: 20140312
  Receipt Date: 20140312
  Transmission Date: 20141002
  Serious: Yes (Hospitalization)
  Sender: FDA-Public Use
  Company Number: KAD201403-000294

PATIENT
  Age: 60 Year
  Sex: Male

DRUGS (3)
  1. RIBAVIRIN (RIBAVIRIN) [Suspect]
     Indication: HEPATITIS C
  2. PEGINTERFERON AFLA-2B [Suspect]
     Indication: HEPATITIS C
  3. TELAPREVIR (TELAPREVIR) [Suspect]
     Indication: HEPATITIS C

REACTIONS (5)
  - Drug reaction with eosinophilia and systemic symptoms [None]
  - Face oedema [None]
  - Excoriation [None]
  - Lymphadenopathy [None]
  - Generalised erythema [None]
